FAERS Safety Report 10215194 (Version 1)
Quarter: 2014Q2

REPORT INFORMATION
  Report Type: Report from Study
  Country: MX (occurrence: MX)
  Receive Date: 20140603
  Receipt Date: 20140603
  Transmission Date: 20141212
  Serious: Yes (Other)
  Sender: FDA-Public Use
  Company Number: PHHY2014MX067626

PATIENT
  Age: 57 Year
  Sex: Male

DRUGS (2)
  1. DIOVAN [Suspect]
     Indication: HYPERTENSION
     Dosage: 2 DF OR 1 DF (80 MG), DAILY
     Route: 048
     Dates: start: 200405
  2. PLAVIX [Concomitant]
     Indication: ANTICOAGULANT THERAPY
     Dosage: 1 UKN, DAILY

REACTIONS (5)
  - Convulsion [Not Recovered/Not Resolved]
  - Embolism [Not Recovered/Not Resolved]
  - Infarction [Not Recovered/Not Resolved]
  - Fall [Not Recovered/Not Resolved]
  - Headache [Not Recovered/Not Resolved]
